FAERS Safety Report 14146306 (Version 1)
Quarter: 2017Q4

REPORT INFORMATION
  Report Type: Spontaneous
  Country: US (occurrence: None)
  Receive Date: 20171031
  Receipt Date: 20171031
  Transmission Date: 20180321
  Serious: Yes (Life-Threatening, Hospitalization, Disabling, Other)
  Sender: FDA-Public Use
  Company Number: None

PATIENT
  Age: 84 Year
  Sex: Male
  Weight: 111.59 kg

DRUGS (12)
  1. CALCIUM [Concomitant]
     Active Substance: CALCIUM
  2. KETOCONAZOLE-2% [Suspect]
     Active Substance: KETOCONAZOLE
     Indication: DANDRUFF
     Dosage: DATES OF USE - 3 TO 6 YRS AGO?ROUTE - SHAMPOO
     Route: 061
  3. CHLOPIDI [Concomitant]
  4. COD LIVER OIL [Concomitant]
     Active Substance: COD LIVER OIL
  5. ULTRA SYSTANE [Concomitant]
  6. FUROMO [Concomitant]
  7. DILTIAZEM. [Concomitant]
     Active Substance: DILTIAZEM
  8. AREDS [Concomitant]
     Active Substance: MINERALS\VITAMINS
  9. VITAMIN B [Concomitant]
     Active Substance: VITAMIN B
  10. METFORM [Concomitant]
     Active Substance: METFORMIN HYDROCHLORIDE
  11. LISIN [Concomitant]
  12. CALTRATE [Concomitant]
     Active Substance: CALCIUM CARBONATE

REACTIONS (3)
  - Dandruff [None]
  - Ultrasound Doppler abnormal [None]
  - Condition aggravated [None]
